FAERS Safety Report 12840344 (Version 2)
Quarter: 2017Q2

REPORT INFORMATION
  Report Type: Spontaneous
  Country: US (occurrence: US)
  Receive Date: 20161012
  Receipt Date: 20170427
  Transmission Date: 20170830
  Serious: Yes (Hospitalization, Other)
  Sender: FDA-Public Use
  Company Number: US-ELI_LILLY_AND_COMPANY-US201610001717

PATIENT
  Age: 63 Year
  Sex: Male
  Weight: 71.66 kg

DRUGS (16)
  1. TYLENOL WITH CODEINE [Concomitant]
     Active Substance: ACETAMINOPHEN\CODEINE PHOSPHATE
     Indication: PAIN
     Dosage: 1 DF, PRN
     Route: 048
  2. SPIRIVA [Concomitant]
     Active Substance: TIOTROPIUM BROMIDE MONOHYDRATE
     Indication: CHRONIC OBSTRUCTIVE PULMONARY DISEASE
     Dosage: 1 DF, QD
     Route: 055
  3. PERFOROMIST [Concomitant]
     Active Substance: FORMOTEROL FUMARATE DIHYDRATE
     Indication: CHRONIC OBSTRUCTIVE PULMONARY DISEASE
     Dosage: 20 UG, BID
     Route: 055
  4. HYCODAN                            /00060002/ [Concomitant]
     Active Substance: HYDROCODONE BITARTRATE
     Indication: COUGH
     Dosage: 5 ML, PRN
     Route: 048
  5. ECOTRIN [Concomitant]
     Active Substance: ASPIRIN
     Indication: CARDIAC DISORDER
     Dosage: 81 MG, QD
     Route: 048
  6. ONGLYZA [Concomitant]
     Active Substance: SAXAGLIPTIN HYDROCHLORIDE
     Indication: TYPE 2 DIABETES MELLITUS
     Dosage: 5 MG, QD
     Route: 048
  7. AUGMENTIN [Concomitant]
     Active Substance: AMOXICILLIN\CLAVULANATE POTASSIUM
     Indication: ANTIBIOTIC THERAPY
     Dosage: 500 MG, BID
     Route: 048
  8. GLUCOPHAGE [Concomitant]
     Active Substance: METFORMIN HYDROCHLORIDE
     Indication: TYPE 2 DIABETES MELLITUS
     Dosage: 500 MG, BID WITH MEALS
     Route: 048
  9. THEO 24 [Concomitant]
     Indication: ASTHMA
     Dosage: 400 MG, QD
     Route: 048
  10. ADCIRCA [Suspect]
     Active Substance: TADALAFIL
     Indication: PULMONARY HYPERTENSION
     Dosage: UNK, UNKNOWN
     Route: 048
     Dates: start: 20160128
  11. ZETIA [Concomitant]
     Active Substance: EZETIMIBE
     Indication: BLOOD CHOLESTEROL
     Dosage: 10 MG, QD
     Route: 048
  12. MEGACE ORAL SUSPENSION [Concomitant]
     Indication: DECREASED APPETITE
     Dosage: 325 MG, QD
     Route: 048
  13. SINGULAIR [Concomitant]
     Active Substance: MONTELUKAST SODIUM
     Indication: DYSPNOEA
     Dosage: 10 MG, EACH EVENING
     Route: 048
  14. DALIRESP [Concomitant]
     Active Substance: ROFLUMILAST
     Indication: CHRONIC OBSTRUCTIVE PULMONARY DISEASE
     Dosage: 500 UG, EACH EVENING
     Route: 048
  15. FERROUS SULFATE. [Concomitant]
     Active Substance: FERROUS SULFATE
     Indication: SUPPLEMENTATION THERAPY
     Dosage: 324 MG, QD
     Route: 048
  16. THERAGRAN                          /01824401/ [Concomitant]
     Indication: SUPPLEMENTATION THERAPY
     Dosage: 1 DF, QD
     Route: 048

REACTIONS (10)
  - Somnolence [Unknown]
  - Respiratory failure [Recovered/Resolved]
  - Fall [Recovered/Resolved]
  - Laceration [Unknown]
  - Syncope [Unknown]
  - Chronic obstructive pulmonary disease [Recovered/Resolved]
  - Facial bones fracture [Unknown]
  - Anaemia [Unknown]
  - Ecchymosis [Unknown]
  - Hypercapnia [Unknown]

NARRATIVE: CASE EVENT DATE: 20170303
